FAERS Safety Report 5253821-X (Version None)
Quarter: 2007Q1

REPORT INFORMATION
  Report Type: 
  Country: None (occurrence: None)
  Receive Date: 20070227
  Receipt Date: 20070215
  Transmission Date: 20070707
  Serious: Yes (Disabling)
  Sender: FDA-Public Use
  Company Number: TUK2007A00014

PATIENT
  Age: 66 Year
  Sex: Female

DRUGS (5)
  1. ACTOS [Suspect]
     Indication: DIABETES MELLITUS
     Dosage: 30 MG, ORAL
     Route: 048
     Dates: start: 20040216, end: 20060914
  2. NOVOMIX (INSULIN ASPART) [Suspect]
     Indication: DIABETES MELLITUS NON-INSULIN-DEPENDENT
     Dosage: SUBCUTANEOUS
     Route: 058
     Dates: start: 20050902
  3. APPROVEL (IRBESARTAN) [Concomitant]
  4. FUORSEMIDE (FUROSEMIDE) [Concomitant]
  5. METFORMIN HCL [Concomitant]

REACTIONS (2)
  - DYSPNOEA [None]
  - MALAISE [None]
